FAERS Safety Report 4415512-4 (Version None)
Quarter: 2004Q3

REPORT INFORMATION
  Report Type: 
  Country: None (occurrence: None)
  Receive Date: 20040730
  Receipt Date: 20040715
  Transmission Date: 20050211
  Serious: Yes (Other)
  Sender: FDA-Public Use
  Company Number: 2004-UK-00690UK

PATIENT
  Age: 67 Year
  Sex: Male

DRUGS (1)
  1. MOBIC [Suspect]
     Indication: BACK PAIN
     Dosage: 7.5 MG (NR, NOT REPORTE) PO
     Route: 048
     Dates: start: 20040604, end: 20040701

REACTIONS (2)
  - BACK PAIN [None]
  - PAIN EXACERBATED [None]
